FAERS Safety Report 8159551-9 (Version None)
Quarter: 2012Q1

REPORT INFORMATION
  Report Type: 
  Country: None (occurrence: None)
  Receive Date: 20120223
  Receipt Date: 20120215
  Transmission Date: 20120608
  Serious: Yes (Other)
  Sender: FDA-Public Use
  Company Number: GB-ROCHE-1040174

PATIENT
  Age: 52 Year
  Sex: Female
  Weight: 59 kg

DRUGS (4)
  1. AMITRIPTYLINE HCL [Concomitant]
     Route: 048
     Dates: start: 20060421, end: 20110906
  2. FOLIC ACID [Concomitant]
     Route: 048
     Dates: start: 20050202, end: 20120121
  3. METHOTREXATE [Concomitant]
     Route: 048
     Dates: start: 20050202, end: 20120120
  4. RITUXIMAB [Suspect]
     Indication: RHEUMATOID ARTHRITIS
     Route: 042
     Dates: start: 20111202, end: 20111216

REACTIONS (3)
  - ALANINE AMINOTRANSFERASE INCREASED [None]
  - LIVER FUNCTION TEST ABNORMAL [None]
  - GAMMA-GLUTAMYLTRANSFERASE INCREASED [None]
